FAERS Safety Report 8007056-8 (Version None)
Quarter: 2011Q4

REPORT INFORMATION
  Report Type: 
  Country: None (occurrence: None)
  Receive Date: 20111123
  Receipt Date: 20111011
  Transmission Date: 20120403
  Serious: No
  Sender: FDA-Public Use
  Company Number: 330997

PATIENT
  Age: 58 Year
  Sex: Female

DRUGS (2)
  1. VICTOZA [Suspect]
     Indication: ANXIETY
     Dosage: 0.6 MG, QD, SUBCUTANEOUS 1.2 MG, SINGLE, SUBCUTANEOUS
     Route: 058
     Dates: start: 20110101
  2. VICTOZA [Suspect]
     Indication: ANXIETY
     Dosage: 0.6 MG, QD, SUBCUTANEOUS 1.2 MG, SINGLE, SUBCUTANEOUS
     Route: 058
     Dates: start: 20110628, end: 20110628

REACTIONS (5)
  - WEIGHT DECREASED [None]
  - DIZZINESS [None]
  - DECREASED APPETITE [None]
  - ALOPECIA [None]
  - INCORRECT DOSE ADMINISTERED [None]
